FAERS Safety Report 5013877-6 (Version None)
Quarter: 2006Q2

REPORT INFORMATION
  Report Type: 
  Country: None (occurrence: None)
  Receive Date: 20060526
  Receipt Date: 20060526
  Transmission Date: 20061013
  Serious: Yes (Life-Threatening, Disabling)
  Sender: FDA-Public Use
  Company Number: None

PATIENT
  Age: 51 Year
  Sex: Female

DRUGS (1)
  1. LUPRON DEPOT [Suspect]
     Indication: UTERINE LEIOMYOMA
     Dosage: TWICE  1/3 MONTHS    IM
     Route: 030
     Dates: start: 20010301, end: 20010701

REACTIONS (1)
  - DIABETES MELLITUS NON-INSULIN-DEPENDENT [None]
